FAERS Safety Report 4490270-6 (Version None)
Quarter: 2004Q4

REPORT INFORMATION
  Report Type: 
  Country: None (occurrence: None)
  Receive Date: 20041101
  Receipt Date: 20041027
  Transmission Date: 20050328
  Serious: Yes (Other)
  Sender: FDA-Public Use
  Company Number: GB-MERCK-0410GBR00305

PATIENT
  Age: 83 Year
  Sex: Female

DRUGS (4)
  1. FOSAMAX [Suspect]
     Indication: OSTEOPOROSIS
     Route: 048
     Dates: start: 20030721, end: 20030729
  2. CALCIUM CARBONATE AND CHOLECALCIFEROL [Concomitant]
     Indication: OSTEOPOROSIS
     Route: 048
     Dates: start: 20020513
  3. CALCIUM CARBONATE AND SODIUM ALGINATE AND SODIUM BICARBONATE [Concomitant]
     Route: 048
  4. HOMEOPATHIC MEDICATIONS (UNSPECIFIED) [Concomitant]
     Indication: DYSPEPSIA
     Route: 065

REACTIONS (3)
  - BACK PAIN [None]
  - DYSPEPSIA [None]
  - MALAISE [None]
